FAERS Safety Report 24228795 (Version 3)
Quarter: 2024Q3

REPORT INFORMATION
  Report Type: Report from Study
  Country: US (occurrence: US)
  Receive Date: 20240820
  Receipt Date: 20240906
  Transmission Date: 20241017
  Serious: Yes (Hospitalization)
  Sender: PFIZER
  Company Number: US-PFIZER INC-202400238466

PATIENT
  Age: 69 Year
  Sex: Female

DRUGS (1)
  1. TUKYSA [Suspect]
     Active Substance: TUCATINIB
     Dosage: TAKE 2 150 MG TABLETS EVERY 12 HOURS
     Dates: start: 20240713

REACTIONS (3)
  - Dyspnoea [Unknown]
  - Fall [Unknown]
  - Skin laceration [Unknown]
